FAERS Safety Report 7391175-3 (Version None)
Quarter: 2011Q2

REPORT INFORMATION
  Report Type: 
  Country: None (occurrence: None)
  Receive Date: 20110404
  Receipt Date: 20100712
  Transmission Date: 20111010
  Serious: Yes (Other)
  Sender: FDA-Public Use
  Company Number: US-PFIZER INC-2010087037

PATIENT
  Sex: Female

DRUGS (2)
  1. ZOLOFT [Suspect]
     Dosage: UNK
     Dates: start: 20100101
  2. CYMBALTA [Suspect]
     Dosage: UNK
     Dates: end: 20100101

REACTIONS (2)
  - ACTIVITIES OF DAILY LIVING IMPAIRED [None]
  - HEADACHE [None]
